FAERS Safety Report 16637886 (Version 1)
Quarter: 2019Q3

REPORT INFORMATION
  Report Type: Spontaneous
  Country: US (occurrence: US)
  Receive Date: 20190726
  Receipt Date: 20190726
  Transmission Date: 20191004
  Serious: Yes (Life-Threatening, Hospitalization, Disabling, Other)
  Sender: FDA-Public Use
  Company Number: None

PATIENT

DRUGS (2)
  1. REMERON [Suspect]
     Active Substance: MIRTAZAPINE
  2. HALDOL [Suspect]
     Active Substance: HALOPERIDOL

REACTIONS (2)
  - Pain [None]
  - Coma [None]

NARRATIVE: CASE EVENT DATE: 20091111
